FAERS Safety Report 5792930-3 (Version None)
Quarter: 2008Q2

REPORT INFORMATION
  Report Type: 
  Country: None (occurrence: None)
  Receive Date: 20080627
  Receipt Date: 20080526
  Transmission Date: 20081010
  Serious: Yes (Other)
  Sender: FDA-Public Use
  Company Number: CA-AVENTIS-200519886GDDC

PATIENT
  Age: 53 Year
  Sex: Female

DRUGS (9)
  1. INSULIN GLARGINE [Suspect]
     Indication: DIABETES MELLITUS
     Route: 058
     Dates: start: 20041230, end: 20051108
  2. OPTIPEN (INSULIN PUMP) [Suspect]
     Indication: DIABETES MELLITUS
  3. CODE UNBROKEN [Suspect]
     Dosage: DOSE QUANTITY: 1
     Dates: start: 20041230
  4. LABETALOL HCL [Concomitant]
     Indication: HYPERTENSION
     Dates: start: 20010101
  5. AVALIDE [Concomitant]
     Indication: HYPERTENSION
     Dates: start: 20041101
  6. VERAPAMIL [Concomitant]
     Indication: HYPERTENSION
     Dates: start: 19990101
  7. ASPIRIN [Concomitant]
     Indication: PROPHYLAXIS
     Dates: start: 20010101
  8. LISINOPRIL [Concomitant]
     Indication: HYPERTENSION
     Dates: start: 20041101
  9. RANITIDINE HCL [Concomitant]
     Dates: start: 20030101

REACTIONS (3)
  - FLUID RETENTION [None]
  - SODIUM RETENTION [None]
  - WEIGHT INCREASED [None]
